FAERS Safety Report 5793148-0 (Version None)
Quarter: 2008Q2

REPORT INFORMATION
  Report Type: 
  Country: None (occurrence: None)
  Receive Date: 20080627
  Receipt Date: 20080501
  Transmission Date: 20081010
  Serious: No
  Sender: FDA-Public Use
  Company Number: A0725841A

PATIENT
  Age: 66 Year
  Sex: Female

DRUGS (18)
  1. FLOVENT [Suspect]
     Indication: ASTHMA
     Dosage: 1PUFF TWICE PER DAY
     Route: 055
     Dates: start: 20080428
  2. SEREVENT [Suspect]
     Indication: ASTHMA
     Dosage: 1PUFF TWICE PER DAY
     Route: 055
     Dates: start: 20080423
  3. TRAZODONE HCL [Suspect]
     Dosage: 50MG PER DAY
     Route: 048
  4. NASONEX [Concomitant]
  5. PIROXICAM [Concomitant]
  6. ZOCOR [Concomitant]
  7. HYDROCODONE [Concomitant]
  8. ALENDRONATE SODIUM [Concomitant]
  9. OSCAL [Concomitant]
  10. REQUIP [Concomitant]
  11. UNKNOWN MEDICATION [Concomitant]
  12. HYDROCHLOROTHIAZIDE [Concomitant]
  13. CELEXA [Concomitant]
  14. NORVASC [Concomitant]
  15. MULTI-VITAMIN [Concomitant]
  16. ALLEGRA [Concomitant]
  17. TRAZODONE HCL [Concomitant]
  18. ASPIRIN [Concomitant]

REACTIONS (2)
  - NERVOUSNESS [None]
  - PAIN [None]
